FAERS Safety Report 18384012 (Version 2)
Quarter: 2020Q4

REPORT INFORMATION
  Report Type: Report from Study
  Country: DE (occurrence: DE)
  Receive Date: 20201015
  Receipt Date: 20201026
  Transmission Date: 20210114
  Serious: Yes (Death, Life-Threatening, Hospitalization, Other)
  Sender: FDA-Public Use
  Company Number: DE-BRISTOL-MYERS SQUIBB COMPANY-BMS-2020-075502

PATIENT
  Age: 77 Year
  Sex: Male

DRUGS (18)
  1. PEGFILGRASTIM [Suspect]
     Active Substance: PEGFILGRASTIM
     Indication: NON-HODGKIN^S LYMPHOMA
     Dosage: 6 MILLIGRAM, 1X1 CYCLE
     Route: 058
     Dates: start: 20200713, end: 20200807
  2. CANDESARTAN. [Concomitant]
     Active Substance: CANDESARTAN
     Indication: HYPERTENSION
     Dosage: 8MG, 1-0-0
     Route: 048
     Dates: start: 202007
  3. DECORTIN [Concomitant]
     Active Substance: PREDNISONE
     Dosage: 5 MILLIGRAM
     Route: 048
     Dates: start: 20200828, end: 20200830
  4. NIVOLUMAB [Suspect]
     Active Substance: NIVOLUMAB
     Indication: NON-HODGKIN^S LYMPHOMA
     Dosage: 193 MILLIGRAM, 1X1 CYCLE
     Route: 042
     Dates: start: 20200709, end: 20200901
  5. GEMCITABINE HYDROCHLORIDE. [Suspect]
     Active Substance: GEMCITABINE HYDROCHLORIDE
     Indication: NON-HODGKIN^S LYMPHOMA
     Dosage: 1282 MILLIGRAM, 1X1CYCLE
     Route: 042
     Dates: start: 20200710, end: 20200818
  6. ACICLOVIR [Concomitant]
     Active Substance: ACYCLOVIR
     Indication: ANTIVIRAL PROPHYLAXIS
     Dosage: 400 MILLIGRAM, QID
     Route: 048
     Dates: start: 20200709
  7. COTRIM FORTE [Concomitant]
     Active Substance: SULFAMETHOXAZOLE\TRIMETHOPRIM
     Indication: INFECTION PROPHYLAXIS
     Dosage: 960 MILLIGRAM, M, T, F
     Route: 048
     Dates: start: 20200709
  8. DECORTIN [Concomitant]
     Active Substance: PREDNISONE
     Indication: ALVEOLITIS
     Dosage: 50 MILLIGRAM, QD
     Route: 048
     Dates: start: 20200818, end: 20200823
  9. DECORTIN [Concomitant]
     Active Substance: PREDNISONE
     Dosage: 25 MILLIGRAM, QD
     Route: 048
     Dates: start: 20200824, end: 20200825
  10. DECORTIN [Concomitant]
     Active Substance: PREDNISONE
     Dosage: 10 MILLIGRAM, QD
     Route: 048
     Dates: start: 20200826, end: 20200827
  11. ASPIRIN. [Concomitant]
     Active Substance: ASPIRIN
     Indication: PROPHYLAXIS
     Dosage: 100MG, 1-0-0
     Route: 048
     Dates: start: 2013
  12. BISOPROLOL [Concomitant]
     Active Substance: BISOPROLOL
     Indication: HYPERTENSION
     Dosage: 10MG, 1-0-0
     Route: 048
     Dates: start: 2000
  13. EUTHYROX [Concomitant]
     Active Substance: LEVOTHYROXINE SODIUM
     Indication: GOITRE
     Dosage: 125MICROG, 1-0-0
     Route: 048
     Dates: start: 2019
  14. ALLOPURINOL. [Concomitant]
     Active Substance: ALLOPURINOL
     Indication: HYPERURICAEMIA
  15. PANTOZOL [Concomitant]
     Active Substance: PANTOPRAZOLE SODIUM
     Indication: PROPHYLAXIS
     Dosage: 40MG, 1-0-0
     Route: 048
     Dates: start: 202007
  16. OXALIPLATIN. [Suspect]
     Active Substance: OXALIPLATIN
     Indication: NON-HODGKIN^S LYMPHOMA
     Dosage: 128 MILLIGRAM, 1X1CYCLE
     Route: 042
     Dates: start: 20200710, end: 20200901
  17. CARMEN [LERCANIDIPINE HYDROCHLORIDE] [Concomitant]
     Active Substance: LERCANIDIPINE HYDROCHLORIDE
     Indication: HYPERTENSION
     Dosage: 10 MILLIGRAM, BID
     Route: 048
     Dates: start: 2000
  18. ALLOPURINOL. [Concomitant]
     Active Substance: ALLOPURINOL
     Indication: PROPHYLAXIS
     Dosage: 100MG, 1-0-0
     Route: 048
     Dates: start: 202007

REACTIONS (2)
  - Pyrexia [Recovered/Resolved]
  - Pulmonary sepsis [Fatal]

NARRATIVE: CASE EVENT DATE: 20200914
